FAERS Safety Report 18827788 (Version 1)
Quarter: 2021Q1

REPORT INFORMATION
  Report Type: Report from Study
  Country: US (occurrence: US)
  Receive Date: 20210202
  Receipt Date: 20210202
  Transmission Date: 20210419
  Serious: Yes (Life-Threatening, Hospitalization)
  Sender: FDA-Public Use
  Company Number: US-BIOGEN-2021BI00973921

PATIENT
  Sex: Female

DRUGS (2)
  1. TECFIDERA [Suspect]
     Active Substance: DIMETHYL FUMARATE
     Indication: MULTIPLE SCLEROSIS
     Route: 065
     Dates: start: 20170728
  2. TECFIDERA [Suspect]
     Active Substance: DIMETHYL FUMARATE
     Route: 065
     Dates: start: 20170726, end: 20190926

REACTIONS (10)
  - Rib fracture [Unknown]
  - Dyspnoea [Unknown]
  - Mobility decreased [Unknown]
  - Concussion [Unknown]
  - Loss of consciousness [Unknown]
  - Road traffic accident [Recovered/Resolved]
  - Contusion [Unknown]
  - Craniocerebral injury [Unknown]
  - Sternal fracture [Unknown]
  - Pain [Unknown]
